FAERS Safety Report 7486983-4 (Version None)
Quarter: 2011Q2

REPORT INFORMATION
  Report Type: 
  Country: None (occurrence: None)
  Receive Date: 20110517
  Receipt Date: 20110504
  Transmission Date: 20111010
  Serious: Yes (Hospitalization, Other)
  Sender: FDA-Public Use
  Company Number: US-ELI_LILLY_AND_COMPANY-US201105001473

PATIENT
  Sex: Female

DRUGS (15)
  1. FORTEO [Suspect]
     Dosage: 20 UG, QD
     Dates: start: 20110422
  2. LEVOTHYROXINE SODIUM [Concomitant]
     Dosage: .075 MG, QD
  3. AMITIPTYLINE [Concomitant]
     Dosage: 25 MG, QD
  4. VITAMIN D [Concomitant]
     Dosage: 1000 IU, QD
  5. FORTEO [Suspect]
     Indication: OSTEOPOROSIS
     Dosage: 20 UG, QD
     Dates: start: 20110406, end: 20110418
  6. METOPROLOL SUCCINATE [Concomitant]
     Dosage: 25 MG, QD
  7. FLEXERIL [Concomitant]
     Dosage: 5 MG, PRN
  8. ASPIRIN [Concomitant]
     Dosage: 81 MG, QD
  9. FOLIC ACID [Concomitant]
     Dosage: 6 MG, 2/W
  10. MULTI-VITAMIN [Concomitant]
     Dosage: UNK, QD
  11. LIPITOR [Concomitant]
     Dosage: 10 MG, QD
  12. METHOTREXATE [Concomitant]
     Dosage: 25 MG, 4/W
  13. CALCIUM CARBONATE [Concomitant]
     Dosage: 1600 MG, TID
  14. AMOXICILLIN [Concomitant]
     Dosage: 500 MG, TID
  15. CELEBREX [Concomitant]
     Dosage: 200 MG, BID

REACTIONS (7)
  - FALL [None]
  - LOSS OF CONSCIOUSNESS [None]
  - OPEN WOUND [None]
  - BACK DISORDER [None]
  - SENSORY DISTURBANCE [None]
  - DIZZINESS [None]
  - ILL-DEFINED DISORDER [None]
